FAERS Safety Report 7948247-1 (Version None)
Quarter: 2011Q4

REPORT INFORMATION
  Report Type: 
  Country: None (occurrence: None)
  Receive Date: 20111130
  Receipt Date: 20111123
  Transmission Date: 20120403
  Serious: Yes (Hospitalization, Other)
  Sender: FDA-Public Use
  Company Number: US-VERTEX PHARMACEUTICALS INC.-AE-2011-003920

PATIENT
  Age: 64 Year
  Sex: Male

DRUGS (3)
  1. PEGASYS [Concomitant]
     Indication: HEPATITIS C
     Dates: end: 20111114
  2. INCIVEK [Suspect]
     Indication: HEPATITIS C
     Dates: end: 20111114
  3. RIBAVIRIN [Concomitant]
     Indication: HEPATITIS C
     Dates: end: 20111114

REACTIONS (2)
  - TRANSFUSION [None]
  - DRUG RASH WITH EOSINOPHILIA AND SYSTEMIC SYMPTOMS [None]
